FAERS Safety Report 8624102-9 (Version None)
Quarter: 2012Q3

REPORT INFORMATION
  Report Type: 
  Country: None (occurrence: None)
  Receive Date: 20120827
  Receipt Date: 20120820
  Transmission Date: 20120928
  Serious: Yes (Other)
  Sender: FDA-Public Use
  Company Number: CA-JNJFOC-20120810471

PATIENT
  Sex: Female
  Weight: 107 kg

DRUGS (4)
  1. BENADRYL [Concomitant]
     Indication: PREMEDICATION
     Route: 048
  2. PREDNISONE TAB [Concomitant]
     Route: 048
  3. METHOTREXATE [Concomitant]
     Dosage: 8 TABS
     Route: 065
  4. REMICADE [Suspect]
     Indication: RHEUMATOID ARTHRITIS
     Route: 042
     Dates: start: 20020828

REACTIONS (2)
  - MIGRAINE [None]
  - MASKED FACIES [None]
